FAERS Safety Report 4523679-2 (Version None)
Quarter: 2004Q4

REPORT INFORMATION
  Report Type: 
  Country: None (occurrence: None)
  Receive Date: 20041210
  Receipt Date: 20041206
  Transmission Date: 20050328
  Serious: Yes (Other)
  Sender: FDA-Public Use
  Company Number: US-GLAXOSMITHKLINE-A0536525A

PATIENT
  Age: 88 Year
  Sex: Female

DRUGS (1)
  1. CEFTIN [Suspect]
     Indication: URINARY TRACT INFECTION
     Dosage: 250MG TWICE PER DAY
     Route: 048

REACTIONS (1)
  - CHOKING [None]
